FAERS Safety Report 19635271 (Version 1)
Quarter: 2021Q3

REPORT INFORMATION
  Report Type: Report from Study
  Country: IT (occurrence: IT)
  Receive Date: 20210730
  Receipt Date: 20210730
  Transmission Date: 20211014
  Serious: Yes (Hospitalization)
  Sender: FDA-Public Use
  Company Number: IT-TEVA-2021-IT-1937798

PATIENT
  Age: 84 Year
  Sex: Male

DRUGS (13)
  1. DICLOFENAC [Suspect]
     Active Substance: DICLOFENAC
     Indication: BACK PAIN
     Route: 065
  2. LANSOPRAZOLO EG 30 MG CAPSULE RIGIDE GASTRORESISTENTI [Concomitant]
  3. ALLOPURINOLO TEVA ITALIA 300 MG COMPRESSE [Concomitant]
     Active Substance: ALLOPURINOL
  4. SINEMET [Concomitant]
     Active Substance: CARBIDOPA\LEVODOPA
  5. ARCOXIA [Suspect]
     Active Substance: ETORICOXIB
     Indication: BACK PAIN
     Route: 048
     Dates: start: 20210129, end: 20210130
  6. COUMADIN [Concomitant]
     Active Substance: WARFARIN SODIUM
  7. OMISTAT 20 MG, COMPRESSE RIVESTITE CON FILM [Concomitant]
  8. LASIX [Concomitant]
     Active Substance: FUROSEMIDE
  9. DILTIAZEM DOC GENERICI 60 MG COMPRESSE [Concomitant]
     Active Substance: DILTIAZEM
  10. OLEVIA 1000 MG CAPSULE MOLLI [Concomitant]
  11. TOUJEO [Concomitant]
     Active Substance: INSULIN GLARGINE
  12. CONGESCOR 1,25 MG, COMPRESSE FILM?RIVESTITE [Concomitant]
     Active Substance: BISOPROLOL FUMARATE
  13. CASODEX 150 MG COMPRESSE RIVESTITE CON FILM [Concomitant]

REACTIONS (3)
  - Bladder dilatation [Recovering/Resolving]
  - Renal failure [Recovering/Resolving]
  - Urinary retention [Recovering/Resolving]

NARRATIVE: CASE EVENT DATE: 20210130
